FAERS Safety Report 20107397 (Version 1)
Quarter: 2021Q4

REPORT INFORMATION
  Report Type: Report from Study
  Country: ZA (occurrence: ZA)
  Receive Date: 20211124
  Receipt Date: 20211124
  Transmission Date: 20220303
  Serious: Yes (Death)
  Sender: FDA-Public Use
  Company Number: ZA-NOVARTISPH-NVSC2021ZA240851

PATIENT
  Age: 80 Year
  Sex: Female

DRUGS (1)
  1. BROLUCIZUMAB [Suspect]
     Active Substance: BROLUCIZUMAB
     Indication: Neovascular age-related macular degeneration
     Dosage: 27.6 MG, QMO (27.6MG IN 0.23ML)
     Route: 047
     Dates: start: 20210908

REACTIONS (2)
  - Death [Fatal]
  - Product dose omission issue [Unknown]

NARRATIVE: CASE EVENT DATE: 20211008
